FAERS Safety Report 11005139 (Version 2)
Quarter: 2015Q2

REPORT INFORMATION
  Report Type: Spontaneous
  Country: JP (occurrence: JP)
  Receive Date: 20150409
  Receipt Date: 20150422
  Transmission Date: 20150821
  Serious: Yes (Other)
  Sender: FDA-Public Use
  Company Number: JP-GLAXOSMITHKLINE-JP2015JPN045663

PATIENT
  Age: 68 Year
  Sex: Male

DRUGS (5)
  1. CRIXIVAN [Suspect]
     Active Substance: INDINAVIR SULFATE
     Dosage: UNK
     Route: 048
  2. EPZICOM [Suspect]
     Active Substance: ABACAVIR SULFATE\LAMIVUDINE
     Route: 048
  3. RETROVIR [Suspect]
     Active Substance: ZIDOVUDINE
     Dosage: UNK
  4. EPIVIR [Suspect]
     Active Substance: LAMIVUDINE
     Indication: ACQUIRED IMMUNODEFICIENCY SYNDROME
     Dosage: UNK
  5. EFAVIRENZ [Suspect]
     Active Substance: EFAVIRENZ
     Dosage: UNK
     Route: 048

REACTIONS (13)
  - Immunology test abnormal [Unknown]
  - Hepatic function abnormal [Unknown]
  - Antimitochondrial antibody positive [Unknown]
  - Anaemia [Unknown]
  - Calculus urinary [Unknown]
  - Type 1 diabetes mellitus [Unknown]
  - DNA antibody positive [Unknown]
  - Anti-GAD antibody positive [Unknown]
  - Cutaneous lupus erythematosus [Unknown]
  - Rash [Unknown]
  - Glycosylated haemoglobin increased [Unknown]
  - Autoantibody positive [Unknown]
  - Antinuclear antibody positive [Unknown]
